FAERS Safety Report 12878129 (Version 1)
Quarter: 2016Q4

REPORT INFORMATION
  Report Type: Spontaneous
  Country: US (occurrence: US)
  Receive Date: 20161024
  Receipt Date: 20161024
  Transmission Date: 20170207
  Serious: Yes (Other)
  Sender: FDA-Public Use
  Company Number: ALCN2016US006984

PATIENT
  Age: 33 Year
  Sex: Male

DRUGS (1)
  1. PREDNISOLONE ACETATE. [Suspect]
     Active Substance: PREDNISOLONE ACETATE
     Indication: IRITIS
     Dosage: 1 DF, TID
     Route: 047

REACTIONS (4)
  - Necrotising scleritis [Unknown]
  - Scleromalacia [Unknown]
  - Condition aggravated [Unknown]
  - Scleral thinning [Unknown]
